FAERS Safety Report 14317785 (Version 1)
Quarter: 2017Q4

REPORT INFORMATION
  Report Type: Spontaneous
  Country: US (occurrence: US)
  Receive Date: 20171221
  Receipt Date: 20171221
  Transmission Date: 20180321
  Serious: Yes (Disabling, Other)
  Sender: FDA-Public Use
  Company Number: None

PATIENT
  Sex: Female
  Weight: 60.3 kg

DRUGS (20)
  1. BETAMETHASONE DIPROPIONATE. [Suspect]
     Active Substance: BETAMETHASONE DIPROPIONATE
     Indication: ECZEMA
     Dosage: ?          QUANTITY:1 GRAMS;?
     Route: 061
  2. NUTRIFERON [Concomitant]
  3. OSTEOMATRIX (CALCIUM + MAGNESIUM) [Concomitant]
  4. HYDROXYZINE [Concomitant]
     Active Substance: HYDROXYZINE HYDROCHLORIDE
  5. BETAMETHASONE DIPROPIONATE. [Suspect]
     Active Substance: BETAMETHASONE DIPROPIONATE
     Indication: DERMATITIS ATOPIC
     Dosage: ?          QUANTITY:1 GRAMS;?
     Route: 061
  6. VIVIX [Concomitant]
  7. VITA E COMPLEX [Concomitant]
  8. LOW-DOSE NALTREXONE [Concomitant]
  9. FLAVOMAX [Concomitant]
  10. ZINC. [Concomitant]
     Active Substance: ZINC
  11. DOXEPIN [Concomitant]
     Active Substance: DOXEPIN
  12. ALFALFA [Concomitant]
     Active Substance: ALFALFA
  13. DESOXIMETASONE. [Suspect]
     Active Substance: DESOXIMETASONE
     Indication: DERMATITIS
     Dosage: ?          QUANTITY:1 G;?
     Route: 061
  14. VITALIZER [Concomitant]
     Active Substance: GLYCERIN
  15. SR VITAMIN C [Concomitant]
  16. CAROTOMAX [Concomitant]
  17. OMEGAGUARD [Concomitant]
  18. GARLIC. [Concomitant]
     Active Substance: GARLIC
  19. LIFE SHAKE [Concomitant]
  20. BETAMETHASONE DIPROPIONATE. [Suspect]
     Active Substance: BETAMETHASONE DIPROPIONATE
     Indication: DERMATITIS
     Dosage: ?          QUANTITY:1 GRAMS;?
     Route: 061

REACTIONS (28)
  - Condition aggravated [None]
  - Drug effect decreased [None]
  - Fatigue [None]
  - Dyspepsia [None]
  - Burning sensation [None]
  - Quality of life decreased [None]
  - Dermatitis contact [None]
  - Dysphonia [None]
  - Multi-organ disorder [None]
  - Autoimmune disorder [None]
  - Nipple disorder [None]
  - Withdrawal syndrome [None]
  - Scratch [None]
  - Rash [None]
  - Secretion discharge [None]
  - Feeling hot [None]
  - Food allergy [None]
  - Pain of skin [None]
  - Skin fissures [None]
  - Drug hypersensitivity [None]
  - Erythema [None]
  - Malaise [None]
  - Visual impairment [None]
  - Feeling cold [None]
  - Gastric ulcer [None]
  - Drug dependence [None]
  - Hypersensitivity [None]
  - Musculoskeletal discomfort [None]

NARRATIVE: CASE EVENT DATE: 20170101
